FAERS Safety Report 9773264 (Version 1)
Quarter: 2013Q4

REPORT INFORMATION
  Report Type: Spontaneous
  Country: TR (occurrence: TR)
  Receive Date: 20131219
  Receipt Date: 20131219
  Transmission Date: 20140711
  Serious: Yes (Other)
  Sender: FDA-Public Use
  Company Number: TR-GLAXOSMITHKLINE-B0952321A

PATIENT
  Age: 20 Year
  Sex: Female

DRUGS (1)
  1. ZINNAT [Suspect]
     Indication: URINARY TRACT INFECTION
     Dosage: 1000MG PER DAY
     Route: 048
     Dates: start: 20131121, end: 20131123

REACTIONS (2)
  - Stillbirth [Unknown]
  - Exposure during pregnancy [Unknown]
